FAERS Safety Report 17665218 (Version 1)
Quarter: 2020Q2

REPORT INFORMATION
  Report Type: Spontaneous
  Country: US (occurrence: US)
  Receive Date: 20200413
  Receipt Date: 20200413
  Transmission Date: 20200713
  Serious: Yes (Hospitalization)
  Sender: FDA-Public Use
  Company Number: None

PATIENT
  Age: 92 Year
  Sex: Female

DRUGS (7)
  1. GLYBURDIE [Concomitant]
  2. FLEXERIL [Concomitant]
     Active Substance: CYCLOBENZAPRINE HYDROCHLORIDE
  3. LASIX [Concomitant]
     Active Substance: FUROSEMIDE
  4. PLETAL [Concomitant]
     Active Substance: CILOSTAZOL
  5. ESBRIET [Suspect]
     Active Substance: PIRFENIDONE
     Indication: IDIOPATHIC PULMONARY FIBROSIS
     Route: 048
     Dates: start: 20151118
  6. PREDNISONE. [Concomitant]
     Active Substance: PREDNISONE
  7. MELOXICAM. [Concomitant]
     Active Substance: MELOXICAM

REACTIONS (8)
  - Lung disorder [None]
  - Product dose omission [None]
  - Vomiting [None]
  - Diarrhoea [None]
  - Decreased appetite [None]
  - Cardiac disorder [None]
  - Nausea [None]
  - Abdominal pain [None]
